FAERS Safety Report 25066613 (Version 2)
Quarter: 2025Q2

REPORT INFORMATION
  Report Type: Report from Study
  Country: US (occurrence: US)
  Receive Date: 20250312
  Receipt Date: 20250411
  Transmission Date: 20250717
  Serious: Yes (Hospitalization, Other)
  Sender: ABBVIE
  Company Number: US-ABBVIE-6167708

PATIENT
  Age: 57 Year
  Sex: Male
  Weight: 142 kg

DRUGS (2)
  1. SKYRIZI [Suspect]
     Active Substance: RISANKIZUMAB-RZAA
     Indication: Psoriasis
     Dosage: FROM STRENGTH 150 MILLIGRAM
     Route: 058
     Dates: start: 20241114, end: 202502
  2. BACTRIM [Concomitant]
     Active Substance: SULFAMETHOXAZOLE\TRIMETHOPRIM
     Indication: Product used for unknown indication

REACTIONS (5)
  - Renal impairment [Recovered/Resolved]
  - Influenza like illness [Recovered/Resolved]
  - Urinary retention [Recovered/Resolved]
  - Prostate infection [Recovering/Resolving]
  - Prostatomegaly [Unknown]

NARRATIVE: CASE EVENT DATE: 20250303
